FAERS Safety Report 24858321 (Version 2)
Quarter: 2025Q1

REPORT INFORMATION
  Report Type: Spontaneous
  Country: US (occurrence: US)
  Receive Date: 20250117
  Receipt Date: 20250314
  Transmission Date: 20250409
  Serious: No
  Sender: ALEXION PHARMACEUTICALS
  Company Number: US-AstraZeneca-CH-00785198A

PATIENT

DRUGS (1)
  1. FASENRA [Suspect]
     Active Substance: BENRALIZUMAB
     Route: 065

REACTIONS (7)
  - Sinus disorder [Unknown]
  - Superficial injury of eye [Unknown]
  - Arthralgia [Unknown]
  - Joint swelling [Unknown]
  - Back disorder [Unknown]
  - Peripheral swelling [Unknown]
  - Joint injury [Unknown]
